FAERS Safety Report 23300147 (Version 1)
Quarter: 2023Q4

REPORT INFORMATION
  Report Type: Spontaneous
  Country: CA (occurrence: CA)
  Receive Date: 20231215
  Receipt Date: 20231215
  Transmission Date: 20240109
  Serious: Yes (Disabling)
  Sender: FDA-Public Use
  Company Number: CA-SANOFI-AVENTIS R+D-2023SA374475

PATIENT

DRUGS (2)
  1. HYDROXYCHLOROQUINE [Suspect]
     Active Substance: HYDROXYCHLOROQUINE
     Indication: Product used for unknown indication
     Dosage: UNK (HYDROXYCHLOROQUINE TABLET)
     Route: 065
     Dates: start: 20190718
  2. METHOTREXATE [Suspect]
     Active Substance: METHOTREXATE
     Indication: Product used for unknown indication
     Dosage: UNK (ORAL AND SUBCUTENEOUS)
     Route: 048
     Dates: start: 20201029, end: 20230426

REACTIONS (5)
  - Impaired work ability [Unknown]
  - Pain [Unknown]
  - Motor dysfunction [Unknown]
  - Fine motor skill dysfunction [Unknown]
  - Muscular weakness [Unknown]
